FAERS Safety Report 9656610 (Version 2)
Quarter: 2013Q4

REPORT INFORMATION
  Report Type: Spontaneous
  Country: GB (occurrence: None)
  Receive Date: 20131028
  Receipt Date: 20131121
  Transmission Date: 20140711
  Serious: Yes (Other)
  Sender: FDA-Public Use
  Company Number: AUR-APL-2013-08659

PATIENT
  Age: 31 Year
  Sex: Male

DRUGS (5)
  1. RIBAVIRIN [Suspect]
     Indication: HEPATITIS C
     Dosage: (2 IN 1 D)
     Route: 048
     Dates: start: 20130204
  2. PEGINTERFERON ALFA-2B [Suspect]
     Indication: HEPATITIS C
     Route: 058
     Dates: start: 20130204
  3. INCIVO (TELAPREVIR) [Suspect]
     Indication: HEPATITIS C
     Dosage: 2250 MG (750 MG, 3 IN 1 D)
     Route: 048
     Dates: start: 20130204
  4. SALCATONIN (CALCITONIN, SALMON) [Concomitant]
  5. CALCITONIN, SALMON (CALCITONIN, SALMON) [Concomitant]

REACTIONS (6)
  - Migraine [None]
  - Pruritus [None]
  - Decreased appetite [None]
  - Weight decreased [None]
  - Constipation [None]
  - Nausea [None]
